FAERS Safety Report 23271585 (Version 1)
Quarter: 2023Q4

REPORT INFORMATION
  Report Type: Spontaneous
  Country: US (occurrence: None)
  Receive Date: 20231206
  Receipt Date: 20231206
  Transmission Date: 20240110
  Serious: No
  Sender: FDA-Public Use
  Company Number: None

PATIENT
  Age: 62 Year
  Sex: Female
  Weight: 72.57 kg

DRUGS (4)
  1. ORENCIA [Suspect]
     Active Substance: ABATACEPT
     Indication: Sjogren^s syndrome
     Dosage: FREQUENCY : WEEKLY;?
     Route: 058
     Dates: start: 202308
  2. ORENCIA [Suspect]
     Active Substance: ABATACEPT
     Indication: Keratitis
  3. ORENCIA [Suspect]
     Active Substance: ABATACEPT
     Indication: Psoriatic arthropathy
  4. ORENCIA [Suspect]
     Active Substance: ABATACEPT
     Indication: Rheumatoid factor positive

REACTIONS (1)
  - Tooth extraction [None]
